FAERS Safety Report 13365756 (Version 1)
Quarter: 2017Q1

REPORT INFORMATION
  Report Type: Spontaneous
  Country: US (occurrence: US)
  Receive Date: 20170323
  Receipt Date: 20170323
  Transmission Date: 20170429
  Serious: No
  Sender: FDA-Public Use
  Company Number: US-WARNER CHILCOTT-2016-002135

PATIENT
  Age: 56 Year
  Sex: Female

DRUGS (2)
  1. ESTRACE [Suspect]
     Active Substance: ESTRADIOL
     Dosage: ON THE OUTSIDE AND A ^SMIDGE^ ON THE INSIDE, LESS THAN 1/4 PEA SIZE
     Route: 067
  2. VITAMIN E                          /00110501/ [Concomitant]
     Active Substance: TOCOPHEROL
     Route: 054

REACTIONS (4)
  - Vulvovaginal dryness [Unknown]
  - Drug prescribing error [Unknown]
  - Vulvovaginal pain [Unknown]
  - Contraindicated product administered [Unknown]
